FAERS Safety Report 11685844 (Version 1)
Quarter: 2015Q4

REPORT INFORMATION
  Report Type: Other
  Country: FR (occurrence: FR)
  Receive Date: 20151030
  Receipt Date: 20151030
  Transmission Date: 20160304
  Serious: Yes (Other)
  Sender: FDA-Public Use
  Company Number: FR-MYLANLABS-2015M1036034

PATIENT

DRUGS (1)
  1. AZATHIOPRINE MYLAN 50MG COMPRIME PELLICULE [Suspect]
     Active Substance: AZATHIOPRINE
     Indication: CROHN^S DISEASE
     Dosage: 4 DF, QD
     Route: 048
     Dates: start: 20150910, end: 20150920

REACTIONS (2)
  - Drug ineffective [Recovered/Resolved]
  - Crohn^s disease [Recovered/Resolved]

NARRATIVE: CASE EVENT DATE: 20150917
